FAERS Safety Report 6036446-8 (Version None)
Quarter: 2009Q1

REPORT INFORMATION
  Report Type: 
  Country: None (occurrence: None)
  Receive Date: 20090112
  Receipt Date: 20081223
  Transmission Date: 20090719
  Serious: Yes (Death)
  Sender: FDA-Public Use
  Company Number: 8040764

PATIENT
  Age: 22 Year
  Sex: Female

DRUGS (4)
  1. METHYLPHENIDATE HCL [Suspect]
     Dates: end: 20070101
  2. EPHEDRA [Suspect]
     Dates: end: 20070101
  3. ETHANOL [Suspect]
     Dates: end: 20070101
  4. VALERIAN [Suspect]
     Dates: end: 20070101

REACTIONS (1)
  - COMPLETED SUICIDE [None]
